FAERS Safety Report 11472230 (Version 1)
Quarter: 2015Q3

REPORT INFORMATION
  Report Type: Spontaneous
  Country: US (occurrence: US)
  Receive Date: 20150908
  Receipt Date: 20150908
  Transmission Date: 20151125
  Serious: No
  Sender: FDA-Public Use
  Company Number: US-SA-2015SA080812

PATIENT
  Age: 67 Year
  Sex: Female

DRUGS (4)
  1. TOUJEO [Suspect]
     Active Substance: INSULIN GLARGINE
     Dosage: DOSE:30 UNIT(S)
     Route: 065
  2. TOUJEO [Suspect]
     Active Substance: INSULIN GLARGINE
     Dosage: PRESCRIBED 30 U
     Route: 065
  3. SOLOSTAR [Concomitant]
     Active Substance: DEVICE
  4. TOUJEO [Suspect]
     Active Substance: INSULIN GLARGINE
     Dosage: DOSE:10 UNIT(S)
     Route: 065
     Dates: start: 20150602, end: 20150602

REACTIONS (5)
  - Incorrect dose administered [Unknown]
  - Fatigue [Unknown]
  - Back pain [Unknown]
  - Blood glucose increased [Unknown]
  - Chest pain [Unknown]

NARRATIVE: CASE EVENT DATE: 20150603
